FAERS Safety Report 9026010 (Version 1)
Quarter: 2013Q1

REPORT INFORMATION
  Report Type: Report from Study
  Country: FR (occurrence: FR)
  Receive Date: 20130122
  Receipt Date: 20130122
  Transmission Date: 20140127
  Serious: Yes (Hospitalization)
  Sender: FDA-Public Use
  Company Number: FR-PFIZER INC-2012307331

PATIENT
  Age: 56 Year
  Sex: Male

DRUGS (3)
  1. GEMTUZUMAB OZOGAMICIN [Suspect]
     Indication: ACUTE LEUKAEMIA
     Dosage: 6 MG/M2, 1X/DAY
     Route: 042
     Dates: start: 20100626, end: 20100626
  2. CYTARABINE [Suspect]
     Indication: ACUTE LEUKAEMIA
     Dosage: 200 MG/M2, 1X/DAY
     Dates: start: 20100623, end: 20100628
  3. DAUNORUBICIN HYDROCHLORIDE [Suspect]
     Indication: ACUTE LEUKAEMIA
     Dosage: 60 MG/M2, 1X/DAY
     Route: 042
     Dates: start: 20100623, end: 20100625

REACTIONS (1)
  - Bronchopulmonary aspergillosis [Recovered/Resolved with Sequelae]
